FAERS Safety Report 17611032 (Version 3)
Quarter: 2021Q3

REPORT INFORMATION
  Report Type: Spontaneous
  Country: US (occurrence: US)
  Receive Date: 20200401
  Receipt Date: 20210805
  Transmission Date: 20211014
  Serious: No
  Sender: FDA-Public Use
  Company Number: US-VERTEX PHARMACEUTICALS-2020-007320

PATIENT
  Sex: Female
  Weight: 49 kg

DRUGS (3)
  1. PULMOZYME [Concomitant]
     Active Substance: DORNASE ALFA
  2. TRIKAFTA [Suspect]
     Active Substance: ELEXACAFTOR\IVACAFTOR\TEZACAFTOR
     Indication: CYSTIC FIBROSIS
     Dosage: 2 ORANGE TABS (100 MG ELEXA/ 50 MG TEZA/ 75 MG IVA) AM; ONE BLUE TAB (150MG IVA) PM
     Route: 048
     Dates: start: 20200108
  3. CAYSTON [Concomitant]
     Active Substance: AZTREONAM

REACTIONS (10)
  - Dyspnoea [Recovered/Resolved]
  - Increased bronchial secretion [Recovered/Resolved]
  - Pneumonia viral [Recovered/Resolved]
  - Headache [Recovered/Resolved]
  - Pyrexia [Recovered/Resolved]
  - Feeding disorder [Recovered/Resolved]
  - COVID-19 [Unknown]
  - Pulmonary function test decreased [Unknown]
  - Chest pain [Recovered/Resolved]
  - Influenza [Recovered/Resolved]

NARRATIVE: CASE EVENT DATE: 2020
